FAERS Safety Report 11171101 (Version 2)
Quarter: 2015Q3

REPORT INFORMATION
  Report Type: Other
  Country: GB (occurrence: GB)
  Receive Date: 20150608
  Receipt Date: 20150706
  Transmission Date: 20151125
  Serious: Yes (Death, Congenital Anomaly)
  Sender: FDA-Public Use
  Company Number: GB-MYLANLABS-2015M1017303

PATIENT

DRUGS (4)
  1. ASPIRIN                            /00002701/ [Concomitant]
     Active Substance: ASPIRIN
     Dosage: UNK
  2. GABAPENTIN. [Suspect]
     Active Substance: GABAPENTIN
     Indication: EPILEPSY
     Dosage: 1100MG MANE, 800MG MIDDAY, 800MG NOCTE
     Route: 064
     Dates: start: 20140708
  3. OMEPRAZOLE                         /00661202/ [Concomitant]
     Dosage: UNK
  4. FOLIC ACID. [Concomitant]
     Active Substance: FOLIC ACID
     Dosage: 5 MG, UNK
     Route: 064

REACTIONS (11)
  - Placental insufficiency [Not Recovered/Not Resolved]
  - Stillbirth [Fatal]
  - Ultrasound antenatal screen [Not Recovered/Not Resolved]
  - Foetal growth restriction [Fatal]
  - Single umbilical artery [Not Recovered/Not Resolved]
  - Foetal exposure during pregnancy [Unknown]
  - Foetal placental thrombosis [Not Recovered/Not Resolved]
  - Congenital hydronephrosis [Not Recovered/Not Resolved]
  - Placental infarction [Not Recovered/Not Resolved]
  - Congenital bladder anomaly [Not Recovered/Not Resolved]
  - Pyelocaliectasis [Not Recovered/Not Resolved]
